FAERS Safety Report 19484410 (Version 1)
Quarter: 2021Q3

REPORT INFORMATION
  Report Type: Spontaneous
  Country: DE (occurrence: DE)
  Receive Date: 20210701
  Receipt Date: 20210701
  Transmission Date: 20211014
  Serious: Yes (Other)
  Sender: FDA-Public Use
  Company Number: NVSC2021DE142328

PATIENT
  Age: 48 Year
  Sex: Male

DRUGS (7)
  1. PEMBROLIZUMAB. [Suspect]
     Active Substance: PEMBROLIZUMAB
     Indication: ADENOCARCINOMA
     Dosage: UNK
     Route: 065
     Dates: start: 201810, end: 201812
  2. PEMBROLIZUMAB. [Suspect]
     Active Substance: PEMBROLIZUMAB
     Dosage: UNK
     Route: 065
     Dates: start: 201901
  3. DOCETAXEL. [Suspect]
     Active Substance: DOCETAXEL
     Dosage: 60 MG/M2, QD
     Route: 065
     Dates: start: 201909
  4. VARGATEF [Suspect]
     Active Substance: NINTEDANIB
     Dosage: 100 MG (1?01, D2?D21, Q22)
     Route: 065
     Dates: start: 201909
  5. DOCETAXEL. [Suspect]
     Active Substance: DOCETAXEL
     Indication: ADENOCARCINOMA
     Dosage: 75 MG/M2, QD (D1)
     Route: 065
     Dates: start: 201907
  6. VARGATEF [Suspect]
     Active Substance: NINTEDANIB
     Indication: ADENOCARCINOMA
     Dosage: 200 MG (1?0?1, D2?D21, Q22)
     Route: 065
     Dates: start: 201907
  7. NEULASTA [Concomitant]
     Active Substance: PEGFILGRASTIM
     Indication: PRODUCT USED FOR UNKNOWN INDICATION
     Dosage: UNK (D2)
     Route: 065

REACTIONS (3)
  - Metastases to central nervous system [Unknown]
  - Neutropenia [Unknown]
  - Influenza [Unknown]

NARRATIVE: CASE EVENT DATE: 201907
